FAERS Safety Report 6439987-4 (Version None)
Quarter: 2009Q4

REPORT INFORMATION
  Report Type: 
  Country: None (occurrence: None)
  Receive Date: 20091113
  Receipt Date: 20091103
  Transmission Date: 20100525
  Serious: Yes (Hospitalization)
  Sender: FDA-Public Use
  Company Number: US-PFIZER INC-2009253953

PATIENT
  Sex: Female
  Weight: 44 kg

DRUGS (10)
  1. SUTENT [Suspect]
     Indication: METASTATIC RENAL CELL CARCINOMA
     Dosage: 50 MG, 1X/DAY
     Route: 048
     Dates: start: 20090318, end: 20090806
  2. TUMS [Concomitant]
     Dosage: UNK
  3. SIMETICONE [Concomitant]
     Dosage: UNK
  4. CLONIDINE [Concomitant]
     Dosage: UNK
  5. FLONASE [Concomitant]
     Dosage: UNK
  6. DILANTIN [Concomitant]
     Dosage: UNK
  7. FERROUS SULFATE [Concomitant]
     Dosage: UNK
  8. VITAMIN B-12 [Concomitant]
     Dosage: UNK
  9. ALBUTEROL [Concomitant]
     Dosage: UNK
  10. CARAFATE [Concomitant]
     Dosage: UNK

REACTIONS (1)
  - HAEMOLYTIC ANAEMIA [None]
